FAERS Safety Report 7335064-9 (Version None)
Quarter: 2011Q1

REPORT INFORMATION
  Report Type: 
  Country: None (occurrence: None)
  Receive Date: 20110307
  Receipt Date: 20110228
  Transmission Date: 20110831
  Serious: Yes (Death)
  Sender: FDA-Public Use
  Company Number: MX-GENZYME-FLUD-1000796

PATIENT

DRUGS (9)
  1. FLUDARA [Suspect]
     Indication: STEM CELL TRANSPLANT
     Dosage: 30 MG/M2 ON DAYS -4, -3, AND -2
     Route: 042
  2. CYCLOPHOSPHAMIDE [Suspect]
     Indication: STEM CELL TRANSPLANT
     Dosage: 350 MG/M2 ON DAYS -4, -3, AND -2
     Route: 042
  3. ACYCLOVIR [Concomitant]
     Indication: PRODUCT USED FOR UNKNOWN INDICATION
     Route: 048
  4. FLUCONAZOLE [Concomitant]
     Indication: PRODUCT USED FOR UNKNOWN INDICATION
     Route: 048
  5. METHOTREXATE [Concomitant]
     Indication: PRODUCT USED FOR UNKNOWN INDICATION
     Dosage: 5 MG/M2 ON DAYS =1, =3, =5, AND =11
     Route: 042
  6. CYCLOSPORINE [Concomitant]
     Indication: STEM CELL TRANSPLANT
     Dosage: 4 MG/KG STARTED ON DAY -1
     Route: 048
  7. CIPROFLOXACIN [Concomitant]
     Indication: PRODUCT USED FOR UNKNOWN INDICATION
     Route: 048
  8. BUSULPHAN [Suspect]
     Indication: STEM CELL TRANSPLANT
     Dosage: 4 MG/KG DAYS -6 AND -5
     Route: 048
  9. ONDANSETRON [Concomitant]
     Indication: PRODUCT USED FOR UNKNOWN INDICATION
     Dosage: 8 MG, UNK
     Route: 042

REACTIONS (1)
  - PNEUMONIA [None]
